FAERS Safety Report 4719624-7 (Version None)
Quarter: 2005Q3

REPORT INFORMATION
  Report Type: 
  Country: None (occurrence: None)
  Receive Date: 20050721
  Receipt Date: 20040413
  Transmission Date: 20060218
  Serious: Yes (Other)
  Sender: FDA-Public Use
  Company Number: US-GLAXOSMITHKLINE-A0508238A

PATIENT
  Age: 47 Year
  Sex: Female

DRUGS (21)
  1. AVANDIA [Suspect]
     Route: 048
  2. AMARYL [Concomitant]
  3. HUMULIN [Concomitant]
  4. DYAZIDE [Concomitant]
     Indication: HYPERTENSION
     Dates: start: 20000221, end: 20010329
  5. DYAZIDE [Concomitant]
     Dosage: 1TAB PER DAY
     Dates: start: 20010329
  6. LOTRISONE [Concomitant]
  7. GLUCOPHAGE XR [Concomitant]
     Dosage: 1000MG PER DAY
     Route: 048
     Dates: start: 20010329
  8. ATACAND [Concomitant]
     Indication: HYPERTENSION
     Dates: start: 20010329
  9. ACTOS [Concomitant]
     Dosage: 30MG PER DAY
     Route: 048
     Dates: start: 20010420
  10. LASIX [Concomitant]
     Dosage: 20MG SINGLE DOSE
     Route: 030
     Dates: start: 20010430, end: 20010430
  11. LASIX [Concomitant]
     Dosage: 20MG PER DAY
     Route: 048
     Dates: start: 20010430
  12. NOVOLIN [Concomitant]
  13. LASIX [Concomitant]
     Route: 030
  14. LANOXIN [Concomitant]
     Dosage: .125MG PER DAY
  15. DOXYCYCLINE [Concomitant]
     Indication: UPPER RESPIRATORY TRACT INFECTION
     Dosage: 100MG TWICE PER DAY
     Route: 048
     Dates: start: 20020206
  16. MUCOFEN DM [Concomitant]
     Indication: UPPER RESPIRATORY TRACT INFECTION
     Dates: start: 20020206
  17. ACEON [Concomitant]
     Indication: HYPERTENSION
     Dosage: 4MG PER DAY
  18. AMOXIL [Concomitant]
     Indication: DRUG USE FOR UNKNOWN INDICATION
     Dosage: 500MG THREE TIMES PER DAY
     Dates: start: 20020827
  19. POLYVENT [Concomitant]
     Indication: DRUG USE FOR UNKNOWN INDICATION
  20. KEFLEX [Concomitant]
     Indication: CELLULITIS
     Dates: start: 20020930
  21. KENALOG [Concomitant]
     Indication: CELLULITIS
     Route: 030

REACTIONS (3)
  - CARDIAC FAILURE CONGESTIVE [None]
  - DYSPNOEA [None]
  - OEDEMA PERIPHERAL [None]
